FAERS Safety Report 8783998 (Version 1)
Quarter: 2012Q4

REPORT INFORMATION
  Report Type: 
  Country: US (occurrence: None)
  Receive Date: 20120906
  Receipt Date: 20120906
  Transmission Date: 20130627
  Serious: Yes (Hospitalization)
  Sender: FDA-Public Use
  Company Number: None

PATIENT
  Sex: Male
  Weight: 130.36 kg

DRUGS (4)
  1. BLEOMYCIN [Suspect]
  2. DACARBAZINE [Suspect]
  3. DOXORUBICIN HYDROCHLORIDE [Suspect]
  4. VINBLASTINE SULFATE [Suspect]

REACTIONS (1)
  - Neutrophil count decreased [None]
